FAERS Safety Report 8889949 (Version 1)
Quarter: 2012Q4

REPORT INFORMATION
  Report Type: 
  Country: US (occurrence: US)
  Receive Date: 20121107
  Receipt Date: 20121107
  Transmission Date: 20130627
  Serious: No
  Sender: FDA-Public Use
  Company Number: US-PFIZER INC-2012277612

PATIENT
  Age: 60 Year
  Sex: Female
  Weight: 63.49 kg

DRUGS (1)
  1. XANAX [Suspect]
     Indication: RELAXATION
     Dosage: 0.5 mg, 4x/day
     Dates: start: 201209

REACTIONS (1)
  - Food allergy [Unknown]
